FAERS Safety Report 6423906-0 (Version None)
Quarter: 2009Q4

REPORT INFORMATION
  Report Type: 
  Country: None (occurrence: None)
  Receive Date: 20091030
  Receipt Date: 20091030
  Transmission Date: 20100525
  Serious: No
  Sender: FDA-Public Use
  Company Number: None

PATIENT
  Age: 85 Year
  Sex: Male

DRUGS (1)
  1. ASPIRIN AND CARISOPRODOL [Suspect]
     Indication: PAIN
     Dosage: 1 TAB UNKNOWN PO
     Route: 048
     Dates: start: 20090410, end: 20090424

REACTIONS (2)
  - RASH [None]
  - URTICARIA [None]
